FAERS Safety Report 26144020 (Version 2)
Quarter: 2025Q4

REPORT INFORMATION
  Report Type: Report from Study
  Country: US (occurrence: US)
  Receive Date: 20251211
  Receipt Date: 20251212
  Transmission Date: 20260118
  Serious: Yes (Other)
  Sender: BRISTOL-MYERS SQUIBB COMPANY
  Company Number: US-BRISTOL-MYERS SQUIBB COMPANY-2025-165205

PATIENT
  Age: 72 Year
  Sex: Female
  Weight: 66.68 kg

DRUGS (1)
  1. ELIQUIS [Suspect]
     Active Substance: APIXABAN
     Indication: Cerebrovascular accident
     Dosage: 5MG IN THE MORNING AND 5MG IN THE EVENING
     Route: 048
     Dates: start: 2019

REACTIONS (2)
  - Adverse event [Unknown]
  - Extra dose administered [Unknown]

NARRATIVE: CASE EVENT DATE: 20251205
